FAERS Safety Report 7175949-X (Version None)
Quarter: 2010Q4

REPORT INFORMATION
  Report Type: 
  Country: None (occurrence: None)
  Receive Date: 20101220
  Receipt Date: 20101208
  Transmission Date: 20110411
  Serious: Yes (Hospitalization)
  Sender: FDA-Public Use
  Company Number: US-BIOGENIDEC-2010BI036375

PATIENT
  Age: 53 Year
  Sex: Female

DRUGS (2)
  1. AVONEX [Suspect]
     Indication: MULTIPLE SCLEROSIS
     Route: 030
     Dates: start: 20030826, end: 20050805
  2. AVONEX [Suspect]
     Route: 030
     Dates: start: 20090912, end: 20091201

REACTIONS (4)
  - MYCOBACTERIUM AVIUM COMPLEX INFECTION [None]
  - PNEUMONIA VIRAL [None]
  - POST PROCEDURAL COMPLICATION [None]
  - RESPIRATORY FAILURE [None]
